FAERS Safety Report 5676226-6 (Version None)
Quarter: 2008Q1

REPORT INFORMATION
  Report Type: 
  Country: None (occurrence: None)
  Receive Date: 20080321
  Receipt Date: 20080227
  Transmission Date: 20080703
  Serious: No
  Sender: FDA-Public Use
  Company Number: US-BOEHRINGER INGELHEIM GMBH, GERMANY-2008-BP-03044BP

PATIENT
  Sex: Female

DRUGS (3)
  1. ZANTAC 150 [Suspect]
     Indication: GASTROOESOPHAGEAL REFLUX DISEASE
     Route: 048
     Dates: start: 20080224
  2. XANAX [Concomitant]
  3. PREVACID [Concomitant]

REACTIONS (6)
  - BURNING SENSATION [None]
  - CHEST PAIN [None]
  - MYALGIA [None]
  - NECK PAIN [None]
  - PAIN IN JAW [None]
  - PRURITUS [None]
